FAERS Safety Report 12105066 (Version 1)
Quarter: 2016Q1

REPORT INFORMATION
  Report Type: Spontaneous
  Country: US (occurrence: US)
  Receive Date: 20160223
  Receipt Date: 20160223
  Transmission Date: 20160526
  Serious: No
  Sender: FDA-Public Use
  Company Number: US-PFIZER INC-2016071841

PATIENT
  Age: 80 Year
  Sex: Female

DRUGS (8)
  1. PLAQUENIL [Suspect]
     Active Substance: HYDROXYCHLOROQUINE SULFATE
  2. NEOSPORIN [Suspect]
     Active Substance: BACITRACIN ZINC\NEOMYCIN SULFATE\POLYMYXIN B SULFATE
  3. ADRENALINE [Suspect]
     Active Substance: EPINEPHRINE
  4. CYMBALTA [Suspect]
     Active Substance: DULOXETINE HYDROCHLORIDE
  5. SULFASALAZINE. [Suspect]
     Active Substance: SULFASALAZINE
  6. CRESTOR [Suspect]
     Active Substance: ROSUVASTATIN CALCIUM
  7. CODEINE [Suspect]
     Active Substance: CODEINE
  8. CEFTIN [Suspect]
     Active Substance: CEFUROXIME AXETIL

REACTIONS (1)
  - Drug hypersensitivity [Unknown]
